FAERS Safety Report 19074058 (Version 1)
Quarter: 2021Q1

REPORT INFORMATION
  Report Type: Spontaneous
  Country: RO (occurrence: RO)
  Receive Date: 20210330
  Receipt Date: 20210330
  Transmission Date: 20210420
  Serious: Yes (Other)
  Sender: FDA-Public Use
  Company Number: RO-009507513-2103ROM007625

PATIENT
  Age: 67 Year
  Sex: Male

DRUGS (1)
  1. KEYTRUDA [Suspect]
     Active Substance: PEMBROLIZUMAB
     Dosage: 200 MILLIGRAM, Q3W

REACTIONS (5)
  - Malignant neoplasm progression [Unknown]
  - Pruritus [Unknown]
  - Autoimmune dermatitis [Unknown]
  - Wound [Unknown]
  - Hallucination, auditory [Unknown]
